FAERS Safety Report 12183253 (Version 1)
Quarter: 2016Q1

REPORT INFORMATION
  Report Type: Spontaneous
  Country: US (occurrence: None)
  Receive Date: 20160315
  Receipt Date: 20160315
  Transmission Date: 20160526
  Serious: Yes (Other)
  Sender: FDA-Public Use
  Company Number: None

PATIENT
  Age: 2 Day
  Sex: Male
  Weight: 140.62 kg

DRUGS (3)
  1. ALEVE [Concomitant]
     Active Substance: NAPROXEN SODIUM
  2. ATORVASTATIN [Suspect]
     Active Substance: ATORVASTATIN
     Indication: BLOOD CHOLESTEROL INCREASED
     Route: 048
     Dates: start: 20160223, end: 20160307
  3. CITRCEL [Concomitant]

REACTIONS (5)
  - Dyspnoea [None]
  - Pain in extremity [None]
  - Chest pain [None]
  - Musculoskeletal pain [None]
  - Myalgia [None]

NARRATIVE: CASE EVENT DATE: 20160313
